FAERS Safety Report 5879864-0 (Version None)
Quarter: 2008Q3

REPORT INFORMATION
  Report Type: 
  Country: None (occurrence: None)
  Receive Date: 20080911
  Receipt Date: 20080911
  Transmission Date: 20090109
  Serious: No
  Sender: FDA-Public Use
  Company Number: None

PATIENT
  Sex: Male
  Weight: 81.6475 kg

DRUGS (1)
  1. CEPHALEXIN [Suspect]
     Dosage: 2 PER DAY FOR 10 DAYS
     Dates: start: 20080816, end: 20080821

REACTIONS (1)
  - MUSCLE SPASMS [None]
